FAERS Safety Report 6318739-X (Version None)
Quarter: 2009Q3

REPORT INFORMATION
  Report Type: 
  Country: None (occurrence: None)
  Receive Date: 20090821
  Receipt Date: 20090817
  Transmission Date: 20100115
  Serious: Yes (Other)
  Sender: FDA-Public Use
  Company Number: PHHY2009GB19341

PATIENT
  Sex: Female

DRUGS (2)
  1. EXELON [Suspect]
  2. LOSARTAN [Concomitant]
     Dosage: 50MG
     Route: 048

REACTIONS (3)
  - CARDIAC PACEMAKER MALFUNCTION [None]
  - ELECTROCARDIOGRAM PR PROLONGATION [None]
  - ELECTROCARDIOGRAM QT PROLONGED [None]
